FAERS Safety Report 10349337 (Version 4)
Quarter: 2015Q2

REPORT INFORMATION
  Report Type: Spontaneous
  Country: DE (occurrence: DE)
  Receive Date: 20140730
  Receipt Date: 20150626
  Transmission Date: 20150821
  Serious: Yes (Death, Other)
  Sender: FDA-Public Use
  Company Number: DE-UCBSA-2014006437

PATIENT
  Sex: Male
  Weight: 75 kg

DRUGS (1)
  1. KEPPRA [Suspect]
     Active Substance: LEVETIRACETAM
     Indication: EPILEPSY
     Dosage: 1500 MG, ONCE DAILY (QD)
     Dates: start: 2014

REACTIONS (4)
  - Brain injury [Fatal]
  - Splenomegaly [Fatal]
  - Lymphadenopathy [Fatal]
  - Eosinophilic myocarditis [Fatal]

NARRATIVE: CASE EVENT DATE: 2014
